FAERS Safety Report 19926171 (Version 1)
Quarter: 2021Q4

REPORT INFORMATION
  Report Type: Spontaneous
  Country: CA (occurrence: CA)
  Receive Date: 20211006
  Receipt Date: 20211006
  Transmission Date: 20220303
  Serious: Yes (Other)
  Sender: FDA-Public Use
  Company Number: CA-TEVA-2021-CA-1961140

PATIENT
  Age: 65 Year
  Sex: Female

DRUGS (9)
  1. LISINOPRIL [Suspect]
     Active Substance: LISINOPRIL
     Indication: Product used for unknown indication
     Route: 048
  2. METHOTREXATE [Suspect]
     Active Substance: METHOTREXATE
     Indication: Rheumatoid arthritis
     Route: 058
  3. SULFASALAZINE [Suspect]
     Active Substance: SULFASALAZINE
     Indication: Rheumatoid arthritis
     Dosage: 500 MILLIGRAM DAILY;
     Route: 048
  4. FOLIC ACID [Suspect]
     Active Substance: FOLIC ACID
     Indication: Product used for unknown indication
     Route: 065
  5. HYDROXYCHLOROQUINE SULFATE [Suspect]
     Active Substance: HYDROXYCHLOROQUINE SULFATE
     Indication: Product used for unknown indication
     Dosage: 200 MILLIGRAM DAILY;
     Route: 048
  6. SYNTHROID [Suspect]
     Active Substance: LEVOTHYROXINE SODIUM
     Indication: Product used for unknown indication
     Route: 065
  7. PANTOPRAZOLE MAGNESIUM [Suspect]
     Active Substance: PANTOPRAZOLE MAGNESIUM
     Indication: Product used for unknown indication
     Route: 048
  8. VOLTAREN [Suspect]
     Active Substance: DICLOFENAC SODIUM
     Indication: Product used for unknown indication
     Route: 048
  9. XELJANZ [Suspect]
     Active Substance: TOFACITINIB CITRATE
     Indication: Rheumatoid arthritis
     Dosage: 100 MILLIGRAM DAILY;
     Route: 065

REACTIONS (15)
  - Contusion [Not Recovered/Not Resolved]
  - Fall [Not Recovered/Not Resolved]
  - Fatigue [Not Recovered/Not Resolved]
  - Grip strength decreased [Not Recovered/Not Resolved]
  - Joint swelling [Not Recovered/Not Resolved]
  - Loss of personal independence in daily activities [Not Recovered/Not Resolved]
  - Osteoarthritis [Not Recovered/Not Resolved]
  - Pain [Not Recovered/Not Resolved]
  - Rheumatoid arthritis [Not Recovered/Not Resolved]
  - Spinal stenosis [Not Recovered/Not Resolved]
  - Tenderness [Not Recovered/Not Resolved]
  - Off label use [Not Recovered/Not Resolved]
  - Off label use [Not Recovered/Not Resolved]
  - Product use issue [Not Recovered/Not Resolved]
  - Treatment failure [Not Recovered/Not Resolved]
